FAERS Safety Report 15132972 (Version 2)
Quarter: 2018Q3

REPORT INFORMATION
  Report Type: Spontaneous
  Country: JP (occurrence: JP)
  Receive Date: 20180712
  Receipt Date: 20180730
  Transmission Date: 20181010
  Serious: Yes (Hospitalization, Other)
  Sender: FDA-Public Use
  Company Number: JP-UCBSA-2018030004

PATIENT
  Age: 68 Year
  Sex: Male
  Weight: 51 kg

DRUGS (9)
  1. FLUCONAZOLE. [Concomitant]
     Active Substance: FLUCONAZOLE
     Indication: PRODUCT USED FOR UNKNOWN INDICATION
  2. CIMZIA [Suspect]
     Active Substance: CERTOLIZUMAB PEGOL
     Indication: RHEUMATOID ARTHRITIS
     Dosage: 400 MG, EV 2 WEEKS(QOW)
     Route: 058
     Dates: start: 20171113, end: 20171211
  3. CIMZIA [Suspect]
     Active Substance: CERTOLIZUMAB PEGOL
     Dosage: 200 MG, UNK
     Route: 058
     Dates: start: 20180108, end: 20180108
  4. MICONAZOLE. [Concomitant]
     Active Substance: MICONAZOLE
     Indication: ORAL CANDIDIASIS
  5. METHOTREXATE. [Suspect]
     Active Substance: METHOTREXATE
     Indication: RHEUMATOID ARTHRITIS
     Dosage: 6 MG, WEEKLY (QW)
     Route: 048
     Dates: start: 20170830, end: 20170910
  6. LOXOPROFEN SODIUM [Concomitant]
     Active Substance: LOXOPROFEN SODIUM
     Indication: PRODUCT USED FOR UNKNOWN INDICATION
     Route: 048
     Dates: start: 20170830, end: 20180131
  7. POLAPREZINC [Concomitant]
     Active Substance: POLAPREZINC
     Indication: DYSGEUSIA
  8. METHOTREXATE. [Suspect]
     Active Substance: METHOTREXATE
     Dosage: 8 MG, WEEKLY (QW)
     Route: 048
     Dates: start: 20170911, end: 20180131
  9. LANSOPRAZOLE. [Concomitant]
     Active Substance: LANSOPRAZOLE
     Indication: PRODUCT USED FOR UNKNOWN INDICATION
     Route: 048
     Dates: start: 20170821, end: 20180131

REACTIONS (3)
  - Dermatophytosis of nail [Recovering/Resolving]
  - Disseminated tuberculosis [Recovered/Resolved]
  - Oral candidiasis [Recovered/Resolved]

NARRATIVE: CASE EVENT DATE: 20180131
